FAERS Safety Report 7058038-4 (Version None)
Quarter: 2010Q4

REPORT INFORMATION
  Report Type: 
  Country: None (occurrence: None)
  Receive Date: 20101022
  Receipt Date: 20101007
  Transmission Date: 20110411
  Serious: Yes (Other)
  Sender: FDA-Public Use
  Company Number: GB-SHIONOGI USA, INC-2010000056

PATIENT
  Sex: Male

DRUGS (1)
  1. GLYCOPYRROLATE [Suspect]

REACTIONS (1)
  - CONVULSION [None]
